FAERS Safety Report 23710038 (Version 1)
Quarter: 2024Q2

REPORT INFORMATION
  Report Type: Spontaneous
  Country: KR (occurrence: KR)
  Receive Date: 20240405
  Receipt Date: 20240405
  Transmission Date: 20240716
  Serious: Yes (Hospitalization)
  Sender: FDA-Public Use
  Company Number: KR-NOVOPROD-1081571

PATIENT
  Age: 78 Year
  Sex: Female
  Weight: 45.7 kg

DRUGS (18)
  1. COZAAR [Concomitant]
     Active Substance: LOSARTAN POTASSIUM
     Dosage: 1 TAB DAILY
     Route: 048
     Dates: start: 20230608
  2. COZAAR [Concomitant]
     Active Substance: LOSARTAN POTASSIUM
     Indication: Hypertension
     Dosage: 1 TAB DAILY
     Route: 048
     Dates: start: 20221111, end: 20230531
  3. CARVEDILOL [Concomitant]
     Active Substance: CARVEDILOL
     Indication: Hypertension
     Dosage: DAILY DOSE: 1TAB
     Route: 048
     Dates: start: 20221209, end: 20230602
  4. PLAVIX [Concomitant]
     Active Substance: CLOPIDOGREL BISULFATE
     Indication: Prophylaxis
     Dosage: 75 MG, QD
     Route: 048
     Dates: start: 20221118
  5. VIVACOR [ROSUVASTATIN CALCIUM] [Concomitant]
     Indication: Dyslipidaemia
     Dosage: 1TAB DAILY,
     Route: 048
     Dates: start: 20221112, end: 20221220
  6. VIVACOR [ROSUVASTATIN CALCIUM] [Concomitant]
     Dosage: 1TAB DAILY
     Route: 048
     Dates: start: 20230108
  7. EZETIMIBE [Concomitant]
     Active Substance: EZETIMIBE
     Indication: Dyslipidaemia
     Dosage: 1 TAB DAILY
     Route: 048
     Dates: start: 20221112, end: 20230108
  8. EZETIMIBE\ROSUVASTATIN [Concomitant]
     Active Substance: EZETIMIBE\ROSUVASTATIN
     Indication: Dyslipidaemia
     Dosage: 1TAB DAILY
     Route: 048
     Dates: start: 20230109
  9. FEROBA YOU SR [Concomitant]
     Indication: Anaemia
     Dosage: DAILY DOSE: 1TAB
     Route: 048
     Dates: start: 20221221
  10. MIRCERA [Concomitant]
     Active Substance: METHOXY POLYETHYLENE GLYCOL-EPOETIN BETA
     Indication: Anaemia
     Dosage: 1 ?G, QD
     Route: 058
     Dates: start: 20230109, end: 20230109
  11. MIRCERA [Concomitant]
     Active Substance: METHOXY POLYETHYLENE GLYCOL-EPOETIN BETA
     Dosage: 1 ?G, QD
     Route: 058
     Dates: start: 20230206, end: 20230206
  12. ALLOPURINOL [Concomitant]
     Active Substance: ALLOPURINOL
     Indication: Chronic kidney disease
     Dosage: 50 MG, QD
     Route: 048
     Dates: start: 20221216
  13. MONUROL [Concomitant]
     Active Substance: FOSFOMYCIN TROMETHAMINE
     Indication: Cystitis
     Dosage: 3 G, QD
     Route: 048
     Dates: start: 20230109, end: 20230109
  14. NORVASC [Concomitant]
     Active Substance: AMLODIPINE BESYLATE
     Indication: Hypertension
     Dosage: 5 MG, QD
     Route: 048
     Dates: start: 20221209, end: 20221220
  15. NORVASC [Concomitant]
     Active Substance: AMLODIPINE BESYLATE
     Dosage: 5 MG, QD
     Route: 048
     Dates: start: 20221221, end: 20230602
  16. NORVASC [Concomitant]
     Active Substance: AMLODIPINE BESYLATE
     Dosage: 5 MG, QD
     Route: 048
     Dates: start: 20230608
  17. XULTOPHY 100/3.6 [Suspect]
     Active Substance: INSULIN DEGLUDEC\LIRAGLUTIDE
     Indication: Type 2 diabetes mellitus
     Dosage: 16 IU, QD, DOSE STEPS
     Route: 058
     Dates: start: 20221221, end: 20230531
  18. XULTOPHY 100/3.6 [Suspect]
     Active Substance: INSULIN DEGLUDEC\LIRAGLUTIDE
     Dosage: 16 IU, QD, DOSE STEPS
     Route: 058
     Dates: start: 20230609

REACTIONS (1)
  - Urinary tract infection [Recovered/Resolved]

NARRATIVE: CASE EVENT DATE: 20230528
